FAERS Safety Report 9060630 (Version 2)
Quarter: 2013Q2

REPORT INFORMATION
  Report Type: Spontaneous
  Country: US (occurrence: US)
  Receive Date: 20130212
  Receipt Date: 20130420
  Transmission Date: 20140414
  Serious: Yes (Other)
  Sender: FDA-Public Use
  Company Number: US-B.I. PHARMACEUTICALS,INC./RIDGEFIELD-2013-BI-03558BP

PATIENT
  Age: 83 Year
  Sex: Male
  Weight: 70 kg

DRUGS (2)
  1. SPIRIVA [Suspect]
     Indication: EMPHYSEMA
     Dosage: 18 MCG
     Route: 055
     Dates: start: 201207
  2. SPIRIVA [Suspect]
     Indication: CHRONIC OBSTRUCTIVE PULMONARY DISEASE

REACTIONS (4)
  - Lung cancer metastatic [Not Recovered/Not Resolved]
  - Brain neoplasm malignant [Not Recovered/Not Resolved]
  - Neoplasm malignant [Not Recovered/Not Resolved]
  - Lymphoma [Not Recovered/Not Resolved]
